FAERS Safety Report 7890541-7 (Version None)
Quarter: 2011Q4

REPORT INFORMATION
  Report Type: 
  Country: None (occurrence: None)
  Receive Date: 20111103
  Receipt Date: 20110721
  Transmission Date: 20120403
  Serious: No
  Sender: FDA-Public Use
  Company Number: US-AMGEN-USASP2011037141

PATIENT
  Age: 53 Year
  Sex: Male
  Weight: 112.47 kg

DRUGS (9)
  1. LOTREL [Concomitant]
     Dosage: UNK MG, UNK
  2. MULTI-VITAMIN [Concomitant]
  3. EXCEDRIN (MIGRAINE) [Concomitant]
  4. GLUCOSAMINE + CHONDROITIN [Concomitant]
  5. ENBREL [Suspect]
     Indication: PRODUCT USED FOR UNKNOWN INDICATION
     Dosage: 50 MG, QWK
  6. PUMPKIN OIL [Concomitant]
  7. POTASSIUM [Concomitant]
     Dosage: 25 MEQ, UNK
  8. FISH OIL [Concomitant]
  9. LORTAB [Concomitant]
     Dosage: 2.5 MG, UNK

REACTIONS (5)
  - ARTHROPATHY [None]
  - THERAPEUTIC RESPONSE DECREASED [None]
  - JOINT CREPITATION [None]
  - INJECTION SITE URTICARIA [None]
  - INJECTION SITE PAIN [None]
